FAERS Safety Report 4580331-5 (Version None)
Quarter: 2005Q1

REPORT INFORMATION
  Report Type: 
  Country: None (occurrence: None)
  Receive Date: 20050214
  Receipt Date: 20031125
  Transmission Date: 20050727
  Serious: Yes (Other)
  Sender: FDA-Public Use
  Company Number: US-GLAXOSMITHKLINE-A0441525A

PATIENT
  Age: 38 Year
  Sex: Female

DRUGS (4)
  1. LAMICTAL [Suspect]
     Indication: EPILEPSY
     Route: 048
  2. NEURONTIN [Concomitant]
  3. TRILEPTAL [Concomitant]
  4. HYDROCORTISONE [Concomitant]

REACTIONS (6)
  - CONVULSION [None]
  - FALL [None]
  - HEAD INJURY [None]
  - HEADACHE [None]
  - TREMOR [None]
  - VISUAL ACUITY REDUCED [None]
